FAERS Safety Report 13821424 (Version 2)
Quarter: 2017Q3

REPORT INFORMATION
  Report Type: Spontaneous
  Country: JP (occurrence: JP)
  Receive Date: 20170801
  Receipt Date: 20170808
  Transmission Date: 20171127
  Serious: Yes (Hospitalization, Other)
  Sender: FDA-Public Use
  Company Number: JP-009507513-1707JPN000519J

PATIENT
  Age: 57 Year
  Sex: Female

DRUGS (2)
  1. BELSOMRA [Suspect]
     Active Substance: SUVOREXANT
     Indication: INSOMNIA
     Dosage: 20 MG, QD
     Route: 048
     Dates: start: 20170601, end: 20170626
  2. REMINYL [Concomitant]
     Active Substance: GALANTAMINE
     Indication: HALLUCINATION
     Dosage: 8 MG, BID
     Route: 048
     Dates: start: 20160616

REACTIONS (2)
  - Depressed level of consciousness [Recovered/Resolved]
  - Decubitus ulcer [Recovered/Resolved]

NARRATIVE: CASE EVENT DATE: 20170625
